FAERS Safety Report 17496529 (Version 2)
Quarter: 2020Q1

REPORT INFORMATION
  Report Type: Report from Study
  Country: ES (occurrence: ES)
  Receive Date: 20200304
  Receipt Date: 20200309
  Transmission Date: 20200409
  Serious: Yes (Hospitalization, Other)
  Sender: FDA-Public Use
  Company Number: ES-VELOXIS PHARMACEUTICALS-2020VELES-000206

PATIENT
  Age: 54 Year
  Sex: Male
  Weight: 95 kg

DRUGS (2)
  1. ENVARSUS XR [Suspect]
     Active Substance: TACROLIMUS
     Indication: IMMUNOSUPPRESSION
     Dosage: UNK
     Route: 048
  2. ENVARSUS XR [Suspect]
     Active Substance: TACROLIMUS
     Dosage: UNK

REACTIONS (10)
  - Cell death [Recovered/Resolved]
  - Hepatitis C [Recovered/Resolved]
  - Nephropathy toxic [Recovered/Resolved]
  - Tremor [Recovering/Resolving]
  - Cholestasis [Recovered/Resolved]
  - Hypertension [Not Recovered/Not Resolved]
  - Cell death [Recovered/Resolved]
  - Tremor [Recovered/Resolved]
  - Cell death [Recovered/Resolved]
  - Ascites [Recovered/Resolved]

NARRATIVE: CASE EVENT DATE: 20180513
